FAERS Safety Report 12626285 (Version 1)
Quarter: 2016Q3

REPORT INFORMATION
  Report Type: Spontaneous
  Country: US (occurrence: US)
  Receive Date: 20160805
  Receipt Date: 20160805
  Transmission Date: 20161109
  Serious: Yes (Other)
  Sender: FDA-Public Use
  Company Number: US-HQ SPECIALTY-US-2016INT000733

PATIENT
  Age: 45 Year
  Sex: Female

DRUGS (3)
  1. AZATHIOPRINE. [Suspect]
     Active Substance: AZATHIOPRINE
     Indication: SARCOIDOSIS
     Dosage: UNK
  2. METHOTREXATE SODIUM. [Suspect]
     Active Substance: METHOTREXATE SODIUM
     Indication: SARCOIDOSIS
     Dosage: 2.1429 MG, (15 MG,1 IN 1 W)
  3. PREDNISONE. [Suspect]
     Active Substance: PREDNISONE
     Indication: SARCOIDOSIS
     Dosage: UNK

REACTIONS (5)
  - Epstein-Barr virus associated lymphoma [Recovering/Resolving]
  - Partial seizures with secondary generalisation [Recovering/Resolving]
  - Diffuse large B-cell lymphoma [Recovering/Resolving]
  - Immunodeficiency [Recovering/Resolving]
  - Angiotensin converting enzyme increased [Recovering/Resolving]
